FAERS Safety Report 10660784 (Version 5)
Quarter: 2016Q2

REPORT INFORMATION
  Report Type: Report from Study
  Country: IT (occurrence: IT)
  Receive Date: 20141217
  Receipt Date: 20160527
  Transmission Date: 20160815
  Serious: Yes (Hospitalization, Disabling)
  Sender: FDA-Public Use
  Company Number: IT-009507513-1412ITA005394

PATIENT
  Age: 53 Year
  Sex: Male
  Weight: 57 kg

DRUGS (13)
  1. FOLINA (FOLIC ACID) [Concomitant]
     Active Substance: FOLIC ACID
     Indication: ANAEMIA PROPHYLAXIS
     Dosage: TOTAL DAILY DOSE: 5 MG
     Route: 048
     Dates: start: 20141010
  2. ADVANTAN [Concomitant]
     Active Substance: CORTICOSTEROID NOS
     Indication: RASH
     Dosage: 1 APPLICATION, QD
     Route: 061
     Dates: start: 20140918
  3. ALCOVER [Concomitant]
     Active Substance: SODIUM OXYBATE
     Indication: ALCOHOLISM
     Dosage: TOTAL DAILY DOSE: 22.5 ML
     Route: 048
     Dates: start: 20140103
  4. SILODYX [Concomitant]
     Active Substance: SILODOSIN
     Indication: DYSURIA
     Dosage: 8 MG, QD
     Route: 048
     Dates: start: 20140919
  5. BOCEPREVIR [Suspect]
     Active Substance: BOCEPREVIR
     Indication: CHRONIC HEPATITIS C
     Dosage: STRENGTH 200MG, TOTAL DAILY DOSE: 2400 MG, QD
     Route: 048
     Dates: start: 20141010, end: 20141207
  6. RIBAVIRIN. [Suspect]
     Active Substance: RIBAVIRIN
     Dosage: 800 MG, QD
     Route: 048
     Dates: start: 20141010, end: 20141010
  7. PEGASYS [Suspect]
     Active Substance: PEGINTERFERON ALFA-2A
     Indication: CHRONIC HEPATITIS C
     Dosage: 180 MICROGRAM, QW
     Route: 058
     Dates: start: 20140912, end: 20141207
  8. DOBETIN [Concomitant]
     Active Substance: CYANOCOBALAMIN
     Indication: ANAEMIA PROPHYLAXIS
     Dosage: TOTAL DAILY DOSE: 1000 UI
     Route: 048
     Dates: start: 20141010
  9. ALCOVER [Concomitant]
     Active Substance: SODIUM OXYBATE
     Indication: ALCOHOL DETOXIFICATION
  10. METHADONE HYDROCHLORIDE. [Concomitant]
     Active Substance: METHADONE HYDROCHLORIDE
     Indication: DRUG DEPENDENCE
     Dosage: TOTAL DAILY DOSE: 20 MG; STRENGTH: 1 MG/ML
     Route: 048
     Dates: start: 20140103
  11. RIBAVIRIN. [Suspect]
     Active Substance: RIBAVIRIN
     Indication: CHRONIC HEPATITIS C
     Dosage: TOTAL DAILY DOSE: 1000 MG, QD
     Route: 048
     Dates: start: 20140912, end: 20141009
  12. RIBAVIRIN. [Suspect]
     Active Substance: RIBAVIRIN
     Dosage: 600 MG, QD
     Route: 048
     Dates: start: 20141011, end: 20141207
  13. PANTORC [Concomitant]
     Active Substance: PANTOPRAZOLE SODIUM
     Indication: ABDOMINAL PAIN UPPER
     Dosage: TOTAL DAILY DOSE: 20 MG
     Route: 048
     Dates: start: 2014

REACTIONS (1)
  - Febrile neutropenia [Recovered/Resolved]

NARRATIVE: CASE EVENT DATE: 20141205
